FAERS Safety Report 5598436-9 (Version None)
Quarter: 2008Q1

REPORT INFORMATION
  Report Type: 
  Country: None (occurrence: None)
  Receive Date: 20080122
  Receipt Date: 20080115
  Transmission Date: 20080703
  Serious: Yes (Other)
  Sender: FDA-Public Use
  Company Number: AU-ASTRAZENECA-2008AP00387

PATIENT
  Age: 72 Year
  Sex: Female

DRUGS (3)
  1. PROPOFOL [Suspect]
     Route: 042
     Dates: start: 20061101
  2. MIDAZOLAM HCL [Concomitant]
  3. FENTANYL [Concomitant]

REACTIONS (8)
  - AUTOIMMUNE DISORDER [None]
  - HYPOAESTHESIA [None]
  - INCORRECT ROUTE OF DRUG ADMINISTRATION [None]
  - INJECTION SITE PAIN [None]
  - MUSCULOSKELETAL STIFFNESS [None]
  - OEDEMA PERIPHERAL [None]
  - PAIN IN EXTREMITY [None]
  - TENDON DISORDER [None]
